FAERS Safety Report 5481041-2 (Version None)
Quarter: 2007Q4

REPORT INFORMATION
  Report Type: 
  Country: None (occurrence: None)
  Receive Date: 20071009
  Receipt Date: 20070927
  Transmission Date: 20080405
  Serious: Yes (Other)
  Sender: FDA-Public Use
  Company Number: GB-PFIZER INC-2007081906

PATIENT
  Age: 45 Year
  Sex: Female

DRUGS (4)
  1. LYRICA [Suspect]
     Route: 048
  2. AMITRIPTYLINE HCL [Concomitant]
  3. ALENDRONATE SODIUM [Concomitant]
  4. BOTOX [Concomitant]

REACTIONS (5)
  - CONVULSION [None]
  - FEELING ABNORMAL [None]
  - MUSCLE SPASMS [None]
  - MUSCLE TWITCHING [None]
  - SOMNOLENCE [None]
